FAERS Safety Report 17456561 (Version 1)
Quarter: 2020Q1

REPORT INFORMATION
  Report Type: Spontaneous
  Country: US (occurrence: US)
  Receive Date: 20200225
  Receipt Date: 20200225
  Transmission Date: 20200409
  Serious: No
  Sender: FDA-Public Use
  Company Number: US-PFIZER INC-2020080773

PATIENT
  Age: 63 Year
  Sex: Female

DRUGS (4)
  1. MIDAZOLAM HYDROCHLORIDE. [Concomitant]
     Active Substance: MIDAZOLAM HYDROCHLORIDE
     Indication: SEDATION
     Dosage: 15 MG, UNK
     Dates: start: 20200120, end: 20200120
  2. FENTANYL CITRATE. [Suspect]
     Active Substance: FENTANYL CITRATE
     Indication: DISCOMFORT
     Dosage: 200 UG, UNK
     Dates: start: 20200120, end: 20200120
  3. FENTANYL CITRATE. [Suspect]
     Active Substance: FENTANYL CITRATE
     Dosage: UNK
     Dates: start: 20200120, end: 20200120
  4. FENTANYL CITRATE. [Suspect]
     Active Substance: FENTANYL CITRATE
     Indication: SEDATION
     Dosage: 25 UG, AS NEEDED ( 25MCG TO 50MCG Q 2MINS - UNTILL DESIRED EFFECT. RICHMOND AGITATION SEDATION SCALE
     Route: 042
     Dates: start: 20200120, end: 20200120

REACTIONS (3)
  - Off label use [Unknown]
  - Drug ineffective [Unknown]
  - Product use in unapproved indication [Unknown]

NARRATIVE: CASE EVENT DATE: 20200120
